FAERS Safety Report 5806740-1 (Version None)
Quarter: 2008Q3

REPORT INFORMATION
  Report Type: 
  Country: None (occurrence: None)
  Receive Date: 20080709
  Receipt Date: 20080709
  Transmission Date: 20090109
  Serious: No
  Sender: FDA-Public Use
  Company Number: None

PATIENT
  Age: 38 Year
  Sex: Male
  Weight: 97.5234 kg

DRUGS (1)
  1. ZICAM MULTI SYMPTOM COLD AND NIGHTTIME [Suspect]
     Indication: NASOPHARYNGITIS
     Dosage: 1/4 OZ 1 PO
     Route: 048
     Dates: start: 20080415, end: 20080415

REACTIONS (3)
  - AGEUSIA [None]
  - ANOSMIA [None]
  - NASAL DISCOMFORT [None]
